FAERS Safety Report 11293843 (Version 2)
Quarter: 2015Q4

REPORT INFORMATION
  Report Type: Report from Study
  Country: MW (occurrence: MW)
  Receive Date: 20150722
  Receipt Date: 20151218
  Transmission Date: 20160304
  Serious: Yes (Other)
  Sender: FDA-Public Use
  Company Number: MW-ABBVIE-15P-100-1429957-00

PATIENT
  Age: 30 Year
  Sex: Female

DRUGS (3)
  1. COMBIVIR [Suspect]
     Active Substance: LAMIVUDINE\ZIDOVUDINE
     Indication: PRODUCT USED FOR UNKNOWN INDICATION
     Dosage: PRIOR TO CONCEPTION
     Route: 048
     Dates: start: 20110511
  2. REYATAZ [Suspect]
     Active Substance: ATAZANAVIR SULFATE
     Indication: PRODUCT USED FOR UNKNOWN INDICATION
     Dosage: PRIOR TO CONCEPTION
     Route: 048
     Dates: start: 20110511, end: 20140624
  3. KALETRA [Suspect]
     Active Substance: LOPINAVIR\RITONAVIR
     Indication: HIV INFECTION
     Route: 048
     Dates: start: 20140624

REACTIONS (2)
  - Exposure during pregnancy [Unknown]
  - Stillbirth [Unknown]

NARRATIVE: CASE EVENT DATE: 20141224
